FAERS Safety Report 9461212 (Version 1)
Quarter: 2013Q3

REPORT INFORMATION
  Report Type: Spontaneous
  Country: US (occurrence: US)
  Receive Date: 20130816
  Receipt Date: 20130816
  Transmission Date: 20140515
  Serious: Yes (Other)
  Sender: FDA-Public Use
  Company Number: US-JNJFOC-20130801115

PATIENT
  Sex: Female

DRUGS (1)
  1. VISINE EYEDROPS [Suspect]
     Indication: POISONING
     Route: 048

REACTIONS (3)
  - Poisoning [Unknown]
  - Intentional drug misuse [Unknown]
  - Victim of crime [None]
